FAERS Safety Report 20124222 (Version 1)
Quarter: 2021Q4

REPORT INFORMATION
  Report Type: Spontaneous
  Country: US (occurrence: US)
  Receive Date: 20211129
  Receipt Date: 20211129
  Transmission Date: 20220303
  Serious: Yes (Other)
  Sender: FDA-Public Use
  Company Number: US-GLAXOSMITHKLINE-US2021GSK242508

PATIENT
  Sex: Male

DRUGS (12)
  1. ZANTAC [Suspect]
     Active Substance: RANITIDINE HYDROCHLORIDE
     Indication: Gastric ulcer
     Dosage: 25 MG, (AT LEAST 3 MONTHS WITHOUT USE)
     Route: 065
     Dates: start: 198701, end: 201501
  2. ZANTAC [Suspect]
     Active Substance: RANITIDINE HYDROCHLORIDE
     Dosage: 75 MG(AT LEAST 3 MONTHS WITHOUT USE)
     Route: 065
     Dates: start: 198701, end: 201501
  3. ZANTAC [Suspect]
     Active Substance: RANITIDINE HYDROCHLORIDE
     Dosage: 150 MG(AT LEAST 3 MONTHS WITHOUT USE)
     Route: 065
     Dates: start: 198701, end: 201501
  4. ZANTAC [Suspect]
     Active Substance: RANITIDINE HYDROCHLORIDE
     Indication: Gastric ulcer
     Dosage: 25 MG(AT LEAST 3 MONTHS WITHOUT USE)
     Route: 065
     Dates: start: 198701, end: 201501
  5. ZANTAC [Suspect]
     Active Substance: RANITIDINE HYDROCHLORIDE
     Dosage: 75 MG(AT LEAST 3 MONTHS WITHOUT USE)
     Route: 065
     Dates: start: 198701, end: 201501
  6. ZANTAC [Suspect]
     Active Substance: RANITIDINE HYDROCHLORIDE
     Dosage: 150 MG(AT LEAST 3 MONTHS WITHOUT USE)
     Route: 065
     Dates: start: 198701, end: 201501
  7. RANITIDINE [Suspect]
     Active Substance: RANITIDINE
     Indication: Gastric ulcer
     Dosage: 25 MGAT LEAST 3 MONTHS WITHOUT USE
     Route: 065
     Dates: start: 198701, end: 201501
  8. RANITIDINE [Suspect]
     Active Substance: RANITIDINE
     Dosage: 75 MGAT LEAST 3 MONTHS WITHOUT USE
     Route: 065
     Dates: start: 198701, end: 201501
  9. RANITIDINE [Suspect]
     Active Substance: RANITIDINE
     Dosage: 150 MGAT LEAST 3 MONTHS WITHOUT USE
     Route: 065
     Dates: start: 198701, end: 201501
  10. RANITIDINE [Suspect]
     Active Substance: RANITIDINE
     Indication: Gastric ulcer
     Dosage: 25 MGAT LEAST 3 MONTHS WITHOUT USE
     Route: 065
     Dates: start: 198701, end: 201501
  11. RANITIDINE [Suspect]
     Active Substance: RANITIDINE
     Dosage: 75 MGAT LEAST 3 MONTHS WITHOUT USE
     Route: 065
     Dates: start: 198701, end: 201501
  12. RANITIDINE [Suspect]
     Active Substance: RANITIDINE
     Dosage: 150 MGAT LEAST 3 MONTHS WITHOUT USE
     Route: 065
     Dates: start: 198701, end: 201501

REACTIONS (2)
  - Colorectal cancer [Unknown]
  - Lymphoma [Unknown]
